FAERS Safety Report 9058775 (Version 5)
Quarter: 2014Q1

REPORT INFORMATION
  Report Type: Report from Study
  Country: NO (occurrence: NO)
  Receive Date: 20130204
  Receipt Date: 20140207
  Transmission Date: 20141002
  Serious: Yes (Hospitalization, Other)
  Sender: FDA-Public Use
  Company Number: PHHY2013NO007017

PATIENT
  Age: 11 Year
  Sex: Male
  Weight: 28 kg

DRUGS (6)
  1. ACZ885 [Suspect]
     Indication: CRYOPYRIN ASSOCIATED PERIODIC SYNDROME
     Dosage: 150 MG, EVERY 4 WEEKS
     Route: 058
     Dates: start: 20110921, end: 20121227
  2. ACZ885 [Suspect]
     Indication: AUTOINFLAMMATORY DISEASE
  3. GENOTROPIN [Concomitant]
     Indication: GROWTH RETARDATION
     Dates: end: 201302
  4. NAPROXEN [Concomitant]
  5. HAEMOPHILUS INFLUENZA TYPE B VACCINE [Concomitant]
  6. PNEUMOCOCCAL VACCINE [Concomitant]

REACTIONS (13)
  - Enterocolitis [Unknown]
  - Weight decreased [Unknown]
  - Diarrhoea [Unknown]
  - Diarrhoea haemorrhagic [Unknown]
  - Anaemia [Unknown]
  - Neck pain [Unknown]
  - General physical health deterioration [Unknown]
  - Gastritis [Unknown]
  - Oesophagitis [Unknown]
  - Helicobacter infection [Unknown]
  - Faecal calprotectin abnormal [Unknown]
  - Pyrexia [Not Recovered/Not Resolved]
  - Pain in extremity [Not Recovered/Not Resolved]
